FAERS Safety Report 17642070 (Version 6)
Quarter: 2020Q2

REPORT INFORMATION
  Report Type: Other
  Country: FR (occurrence: FR)
  Receive Date: 20200408
  Receipt Date: 20200618
  Transmission Date: 20200713
  Serious: Yes (Other)
  Sender: FDA-Public Use
  Company Number: FR-CELLTRION INC.-2020FR021271

PATIENT

DRUGS (17)
  1. RITUXIMAB (UNKNOWN) [Suspect]
     Active Substance: RITUXIMAB
     Indication: LYMPHOMA
     Dosage: 600 MILLIGRAM, QD
     Route: 042
     Dates: start: 20200227, end: 20200227
  2. METHYLPREDNISOLONE. [Suspect]
     Active Substance: METHYLPREDNISOLONE
     Indication: CHEMOTHERAPY
     Dosage: 40 MILLIGRAM, QD
     Route: 042
     Dates: start: 20200227, end: 20200227
  3. FOLINATE DE CALCIUM WINTHROP [Suspect]
     Active Substance: LEUCOVORIN CALCIUM
     Indication: LYMPHOMA
     Dosage: 25 MILLIGRAM, QD
     Route: 042
     Dates: start: 20200228, end: 20200302
  4. FOLINATE DE CALCIUM [Suspect]
     Active Substance: LEUCOVORIN CALCIUM
     Indication: LYMPHOMA
     Dosage: 25 MILLIGRAM, QD
     Route: 042
     Dates: start: 20200228, end: 20200302
  5. LANSOPRAZOLE. [Suspect]
     Active Substance: LANSOPRAZOLE
     Indication: PRODUCT USED FOR UNKNOWN INDICATION
     Dosage: 15 MILLIGRAM, QD
     Route: 048
     Dates: start: 20200221, end: 20200309
  6. ZOPHREN [Suspect]
     Active Substance: ONDANSETRON
     Indication: PROPHYLAXIS
     Dosage: 2 DF, QD
     Route: 048
     Dates: start: 20200227, end: 20200229
  7. ETOPOSIDE. [Suspect]
     Active Substance: ETOPOSIDE
     Indication: LYMPHOMA
     Dosage: 150 MILLIGRAM, QD
     Route: 042
     Dates: start: 20200228, end: 20200228
  8. CARMUSTINE. [Suspect]
     Active Substance: CARMUSTINE
     Indication: LYMPHOMA
     Dosage: 150 MILLIGRAM, QD
     Route: 042
     Dates: start: 20200229, end: 20200229
  9. OLANZAPINE. [Suspect]
     Active Substance: OLANZAPINE
     Indication: MANIA
     Dosage: 5 MILLIGRAM, QD
     Route: 048
     Dates: start: 20200117, end: 20200224
  10. DEXCHLORPHENIRAMINE MALEATE. [Suspect]
     Active Substance: DEXCHLORPHENIRAMINE MALEATE
     Indication: PROPHYLAXIS
     Dosage: 2 MILLIGRAM, QD
     Route: 048
     Dates: start: 20200227, end: 20200227
  11. PREDNISOLONE. [Suspect]
     Active Substance: PREDNISOLONE
     Indication: LYMPHOMA
     Dosage: 100 MILLIGRAM
     Route: 042
     Dates: start: 20200227, end: 20200302
  12. PARACETAMOL [Suspect]
     Active Substance: ACETAMINOPHEN
     Indication: PAIN
     Dosage: 500 MILLIGRAM, QD
     Route: 048
     Dates: start: 20200227, end: 20200227
  13. POLARAMINE [Suspect]
     Active Substance: DEXCHLORPHENIRAMINE MALEATE
     Dosage: 2 MG, QD
     Route: 048
     Dates: start: 20200227, end: 20200227
  14. ZOPHREN [Suspect]
     Active Substance: ONDANSETRON
     Dosage: 16 MILLIGRAM, QD
     Route: 048
     Dates: start: 20200227, end: 20200229
  15. ONDANSETRON [Suspect]
     Active Substance: ONDANSETRON
     Indication: PROPHYLAXIS
     Dosage: 16 MILLIGRAM, QD
     Route: 048
     Dates: start: 20200227, end: 20200229
  16. METHOTREXATE. [Suspect]
     Active Substance: METHOTREXATE
     Indication: PRODUCT USED FOR UNKNOWN INDICATION
     Dosage: 4750 MILLIGRAM, QD
     Route: 042
     Dates: start: 20200228, end: 20200228
  17. POLARAMINE [Suspect]
     Active Substance: DEXCHLORPHENIRAMINE MALEATE
     Indication: PROPHYLAXIS
     Dosage: 1 DF, QD
     Route: 048
     Dates: start: 20200227, end: 20200227

REACTIONS (2)
  - Hepatocellular injury [Recovered/Resolved]
  - Overdose [Unknown]

NARRATIVE: CASE EVENT DATE: 20200301
